FAERS Safety Report 18139134 (Version 1)
Quarter: 2020Q3

REPORT INFORMATION
  Report Type: Spontaneous
  Country: ES (occurrence: ES)
  Receive Date: 20200812
  Receipt Date: 20200812
  Transmission Date: 20201103
  Serious: Yes (Other)
  Sender: FDA-Public Use
  Company Number: ES-TEVA-2020-ES-1813114

PATIENT
  Age: 34 Year
  Sex: Female

DRUGS (7)
  1. DICLOFENACO (745A) [Suspect]
     Active Substance: DICLOFENAC
     Indication: BACK PAIN
     Dosage: 50 MG
     Route: 048
     Dates: start: 20200410, end: 20200502
  2. AMOXICILINA (108A) [Suspect]
     Active Substance: AMOXICILLIN
     Indication: TOOTHACHE
     Dosage: 750 MG
     Route: 048
     Dates: start: 20200313, end: 20200323
  3. DIAZEPAM (730A) [Concomitant]
     Active Substance: DIAZEPAM
     Dosage: 10 MG
     Route: 048
     Dates: start: 20200410, end: 20200430
  4. OMEPRAZOL (2141A) [Suspect]
     Active Substance: OMEPRAZOLE
     Dosage: 20 MG
     Route: 048
     Dates: start: 20200410, end: 20200510
  5. METAMIZOL (111A) [Suspect]
     Active Substance: METAMIZOL SODIUM
     Indication: BACK PAIN
     Dosage: 575 MG
     Route: 048
     Dates: start: 20200410, end: 20200502
  6. PARACETAMOL (12A) [Suspect]
     Active Substance: ACETAMINOPHEN
     Indication: TOOTHACHE
     Dosage: 1 G
     Route: 048
     Dates: start: 20200313, end: 20200326
  7. ENANTYUM 25 MG COMPRIMIDOS, 20 COMPRIMIDOS [Suspect]
     Active Substance: DEXKETOPROFEN TROMETAMOL
     Indication: BACK PAIN
     Dosage: 25 MG
     Route: 048
     Dates: start: 20200410, end: 20200502

REACTIONS (2)
  - Hepatocellular injury [Recovered/Resolved]
  - Hyperbilirubinaemia [Recovered/Resolved]

NARRATIVE: CASE EVENT DATE: 20200502
